FAERS Safety Report 23719595 (Version 1)
Quarter: 2024Q2

REPORT INFORMATION
  Report Type: Spontaneous
  Country: US (occurrence: US)
  Receive Date: 20240408
  Receipt Date: 20240408
  Transmission Date: 20240715
  Serious: No
  Sender: FDA-Public Use
  Company Number: US-ABBVIE-5710543

PATIENT
  Sex: Female

DRUGS (2)
  1. LATISSE [Suspect]
     Active Substance: BIMATOPROST
     Indication: Growth of eyelashes
     Dosage: STRENGTH: 0.3MG/ML, TOPICAL OPHTHALMIC
     Route: 065
  2. LATISSE [Suspect]
     Active Substance: BIMATOPROST
     Dosage: STRENGTH: 0.3MG/ML, TOPICAL OPHTHALMIC
     Route: 065

REACTIONS (1)
  - Drug ineffective [Unknown]
